FAERS Safety Report 7233414-5 (Version None)
Quarter: 2011Q1

REPORT INFORMATION
  Report Type: 
  Country: None (occurrence: None)
  Receive Date: 20110119
  Receipt Date: 20110114
  Transmission Date: 20110831
  Serious: Yes (Hospitalization, Other)
  Sender: FDA-Public Use
  Company Number: US-AMGEN-USASP2011002426

PATIENT

DRUGS (1)
  1. ENBREL [Suspect]
     Indication: RHEUMATOID ARTHRITIS
     Dates: start: 20000601

REACTIONS (10)
  - OSTEOPOROSIS [None]
  - NASOPHARYNGITIS [None]
  - PAIN [None]
  - INJECTION SITE PAIN [None]
  - CYST [None]
  - INFLUENZA [None]
  - PLEURAL EFFUSION [None]
  - KIDNEY INFECTION [None]
  - BREAST CANCER [None]
  - FOOT FRACTURE [None]
